FAERS Safety Report 20444749 (Version 2)
Quarter: 2022Q1

REPORT INFORMATION
  Report Type: Spontaneous
  Country: US (occurrence: None)
  Receive Date: 20220208
  Receipt Date: 20220318
  Transmission Date: 20220423
  Serious: No
  Sender: FDA-Public Use
  Company Number: 2022A026167

PATIENT
  Age: 80 Year
  Sex: Female
  Weight: 50.3 kg

DRUGS (7)
  1. BUDESONIDE\FORMOTEROL\GLYCOPYRRONIUM [Suspect]
     Active Substance: BUDESONIDE\FORMOTEROL\GLYCOPYRRONIUM
     Indication: Chronic obstructive pulmonary disease
     Route: 055
  2. SYMBICORT [Suspect]
     Active Substance: BUDESONIDE\FORMOTEROL FUMARATE DIHYDRATE
     Indication: Chronic obstructive pulmonary disease
     Dosage: 160/4.5, TWO PUFFS TWO TIMES A DAY
     Route: 065
  3. SPIRIVA [Concomitant]
     Active Substance: TIOTROPIUM BROMIDE MONOHYDRATE
     Dosage: TWO PUFFS DAILY
  4. HYQVIA [Concomitant]
     Active Substance: HUMAN IMMUNOGLOBULIN G\HYALURONIDASE RECOMBINANT HUMAN
     Dosage: UNKNOWN DOSE EVERY FEW WEEKS
  5. ASPIRIN [Concomitant]
     Active Substance: ASPIRIN
  6. SIMVASTATIN [Concomitant]
     Active Substance: SIMVASTATIN
  7. CALCIUM [Concomitant]
     Active Substance: CALCIUM

REACTIONS (7)
  - Immune system disorder [Unknown]
  - Intentional device use issue [Unknown]
  - Product dose omission issue [Unknown]
  - Product cleaning inadequate [Unknown]
  - Device delivery system issue [Unknown]
  - Device occlusion [Unknown]
  - Intentional device misuse [Unknown]

NARRATIVE: CASE EVENT DATE: 20180101
